FAERS Safety Report 7469000-1 (Version None)
Quarter: 2011Q2

REPORT INFORMATION
  Report Type: 
  Country: None (occurrence: None)
  Receive Date: 20110510
  Receipt Date: 20110429
  Transmission Date: 20111010
  Serious: Yes (Other)
  Sender: FDA-Public Use
  Company Number: US-ELI_LILLY_AND_COMPANY-US201105000478

PATIENT
  Sex: Female

DRUGS (3)
  1. METFORMIN HCL [Concomitant]
     Dosage: UNK
  2. INDERAL [Concomitant]
     Dosage: UNK
  3. HUMALOG MIX 50/50 [Suspect]
     Indication: DIABETES MELLITUS
     Dosage: 80 U, BID
     Dates: start: 20100101

REACTIONS (2)
  - BLINDNESS [None]
  - PROTEINURIA [None]
